FAERS Safety Report 9067784 (Version 2)
Quarter: 2013Q2

REPORT INFORMATION
  Report Type: Report from Study
  Country: JP (occurrence: JP)
  Receive Date: 20130128
  Receipt Date: 20130517
  Transmission Date: 20140414
  Serious: Yes (Hospitalization)
  Sender: FDA-Public Use
  Company Number: JP-ROCHE-1183873

PATIENT
  Age: 84 Year
  Sex: Female

DRUGS (7)
  1. METHOXY POLYETHYLENE GLYCOL-EPOETIN BETA [Suspect]
     Indication: NEPHROGENIC ANAEMIA
     Route: 058
     Dates: start: 20121022, end: 20130201
  2. OMEPRAZOLE [Concomitant]
     Route: 048
  3. FEBURIC [Concomitant]
     Indication: GLOMERULONEPHRITIS CHRONIC
     Route: 048
  4. BLOPRESS [Concomitant]
     Indication: GLOMERULONEPHRITIS CHRONIC
     Route: 048
  5. LASIX [Concomitant]
     Indication: GLOMERULONEPHRITIS CHRONIC
     Route: 048
  6. CONIEL [Concomitant]
     Indication: GLOMERULONEPHRITIS CHRONIC
     Route: 048
  7. MAGMITT [Concomitant]
     Route: 048

REACTIONS (1)
  - Pulmonary oedema [Unknown]
